FAERS Safety Report 5244963-3 (Version None)
Quarter: 2007Q1

REPORT INFORMATION
  Report Type: 
  Country: None (occurrence: None)
  Receive Date: 20070221
  Receipt Date: 20070221
  Transmission Date: 20070707
  Serious: Yes (Life-Threatening, Hospitalization, Other)
  Sender: FDA-Public Use
  Company Number: None

PATIENT
  Age: 47 Year
  Sex: Female
  Weight: 52.1637 kg

DRUGS (2)
  1. MS CONTIN [Suspect]
     Indication: COMPLEX REGIONAL PAIN SYNDROME
     Dosage: 1 TABLET  TWICE DAILY-BID- PO
     Route: 048
     Dates: start: 20000820, end: 20070220
  2. LOTREL [Suspect]
     Indication: HYPERTENSION
     Dosage: 1 TAB DAILY PO
     Route: 048
     Dates: start: 20010101, end: 20070220

REACTIONS (13)
  - APPENDICITIS PERFORATED [None]
  - COLLAPSE OF LUNG [None]
  - COMPLEX REGIONAL PAIN SYNDROME [None]
  - CONDITION AGGRAVATED [None]
  - GANGRENE [None]
  - HAEMATOTOXICITY [None]
  - JOINT SPRAIN [None]
  - MUSCLE ATROPHY [None]
  - PAIN [None]
  - PERITONITIS [None]
  - PHLEBITIS [None]
  - PLEURAL EFFUSION [None]
  - POST PROCEDURAL COMPLICATION [None]
